FAERS Safety Report 21706209 (Version 1)
Quarter: 2022Q4

REPORT INFORMATION
  Report Type: Spontaneous
  Country: TR (occurrence: TR)
  Receive Date: 20221209
  Receipt Date: 20221209
  Transmission Date: 20230113
  Serious: Yes (Other)
  Sender: FDA-Public Use
  Company Number: TR-002147023-NVSC2022TR282313

PATIENT
  Age: 13 Year

DRUGS (1)
  1. ILARIS [Suspect]
     Active Substance: CANAKINUMAB
     Indication: Rheumatoid arthritis
     Dosage: QMO
     Route: 065
     Dates: start: 20190128

REACTIONS (2)
  - Rheumatoid arthritis [Unknown]
  - Off label use [Unknown]
